FAERS Safety Report 8111510-8 (Version None)
Quarter: 2012Q1

REPORT INFORMATION
  Report Type: 
  Country: None (occurrence: None)
  Receive Date: 20120202
  Receipt Date: 20120202
  Transmission Date: 20120608
  Serious: Yes (Other)
  Sender: FDA-Public Use
  Company Number: None

PATIENT
  Age: 8 Year
  Sex: Male
  Weight: 36.4 kg

DRUGS (2)
  1. ADDERALL XR 10 [Suspect]
     Indication: AUTISM
     Dosage: 10 MG; 15 MG
     Dates: start: 20090325
  2. ADDERALL XR 10 [Suspect]
     Indication: AUTISM
     Dosage: 10 MG; 15 MG
     Dates: start: 20090425

REACTIONS (2)
  - DECREASED APPETITE [None]
  - SOMNAMBULISM [None]
